FAERS Safety Report 9539444 (Version 4)
Quarter: 2015Q4

REPORT INFORMATION
  Report Type: Spontaneous
  Country: US (occurrence: US)
  Receive Date: 20130920
  Receipt Date: 20151228
  Transmission Date: 20160305
  Serious: Yes (Life-Threatening, Hospitalization, Other)
  Sender: FDA-Public Use
  Company Number: US-BAYER-2013-111855

PATIENT
  Age: 34 Year
  Sex: Female
  Weight: 74.83 kg

DRUGS (7)
  1. YASMIN [Suspect]
     Active Substance: DROSPIRENONE\ETHINYL ESTRADIOL
     Indication: CONTRACEPTION
     Dosage: UNK
     Route: 048
     Dates: start: 20050101, end: 20101015
  2. IBUPROFEN. [Concomitant]
     Active Substance: IBUPROFEN
     Dosage: UNK
     Dates: start: 200802
  3. OMEPRAZOL [Concomitant]
     Active Substance: OMEPRAZOLE
     Dosage: UNK
     Dates: start: 20101025
  4. OCELLA [Suspect]
     Active Substance: DROSPIRENONE\ETHINYL ESTRADIOL
     Indication: CONTRACEPTION
     Dosage: UNK
     Route: 048
     Dates: start: 20050101, end: 20101015
  5. CETIRIZINE [Concomitant]
     Active Substance: CETIRIZINE HYDROCHLORIDE
     Dosage: UNK
     Dates: start: 20101005
  6. SINGULAIR [Concomitant]
     Active Substance: MONTELUKAST SODIUM
     Dosage: UNK
     Dates: start: 20101005
  7. VERAMYST [Concomitant]
     Active Substance: FLUTICASONE FUROATE
     Dosage: 275 MCG
     Dates: start: 20101005

REACTIONS (12)
  - Collateral circulation [None]
  - Embolism arterial [None]
  - Splenomegaly [None]
  - Portal vein thrombosis [Recovered/Resolved]
  - Hepatic vein thrombosis [Recovered/Resolved]
  - Portal hypertension [Recovering/Resolving]
  - Thrombocytopenia [None]
  - Liver injury [None]
  - Varices oesophageal [Recovering/Resolving]
  - Injury [Recovered/Resolved]
  - Leukopenia [None]
  - Pain [Recovered/Resolved]

NARRATIVE: CASE EVENT DATE: 20101105
